FAERS Safety Report 20246548 (Version 1)
Quarter: 2021Q4

REPORT INFORMATION
  Report Type: Report from Study
  Country: IT (occurrence: IT)
  Receive Date: 20211229
  Receipt Date: 20211229
  Transmission Date: 20220303
  Serious: Yes (Hospitalization, Other)
  Sender: FDA-Public Use
  Company Number: IT-002147023-NVSC2021IT293273

PATIENT

DRUGS (8)
  1. RUXOLITINIB [Suspect]
     Active Substance: RUXOLITINIB
     Indication: Myelofibrosis
     Dosage: 20 OT DAILY
     Route: 065
     Dates: start: 20210616, end: 20210707
  2. RUXOLITINIB [Suspect]
     Active Substance: RUXOLITINIB
     Dosage: 10 OT DAILY
     Route: 065
     Dates: start: 20210803, end: 20210901
  3. RUXOLITINIB [Suspect]
     Active Substance: RUXOLITINIB
     Dosage: 20 OT DAILY
     Route: 065
     Dates: start: 20210902, end: 20211030
  4. RUXOLITINIB [Suspect]
     Active Substance: RUXOLITINIB
     Dosage: 20 OT DAILY
     Route: 065
     Dates: start: 20211102, end: 20211118
  5. RUXOLITINIB [Suspect]
     Active Substance: RUXOLITINIB
     Dosage: 30 OT DAILY
     Route: 065
     Dates: start: 20211119, end: 20211201
  6. RUXOLITINIB [Suspect]
     Active Substance: RUXOLITINIB
     Dosage: 20 OT DAILY
     Route: 065
     Dates: start: 20211202, end: 20211203
  7. RUXOLITINIB [Suspect]
     Active Substance: RUXOLITINIB
     Dosage: 10 OT DAILY
     Route: 065
     Dates: start: 20211204, end: 20211210
  8. RUXOLITINIB [Suspect]
     Active Substance: RUXOLITINIB
     Dosage: 5 OT DAILY
     Route: 065
     Dates: start: 20211211

REACTIONS (2)
  - Neutropenia [Unknown]
  - Pleural effusion [Unknown]

NARRATIVE: CASE EVENT DATE: 20210707
